FAERS Safety Report 24357341 (Version 2)
Quarter: 2024Q3

REPORT INFORMATION
  Report Type: Spontaneous
  Country: US (occurrence: US)
  Receive Date: 20240924
  Receipt Date: 20240925
  Transmission Date: 20241016
  Serious: No
  Sender: NOVARTIS
  Company Number: US-002147023-NVSC2024US189954

PATIENT
  Age: 35 Year
  Sex: Female

DRUGS (1)
  1. COSENTYX [Suspect]
     Active Substance: SECUKINUMAB
     Indication: Product used for unknown indication
     Dosage: UNK (AS NEEDED)
     Route: 062

REACTIONS (1)
  - Arthralgia [Unknown]
